FAERS Safety Report 8582931-4 (Version None)
Quarter: 2012Q3

REPORT INFORMATION
  Report Type: 
  Country: None (occurrence: None)
  Receive Date: 20120809
  Receipt Date: 20120731
  Transmission Date: 20120928
  Serious: No
  Sender: FDA-Public Use
  Company Number: US-ASTRAZENECA-2011SE62749

PATIENT
  Age: 56 Year
  Sex: Female

DRUGS (4)
  1. PLAVIX [Concomitant]
  2. CRESTOR [Suspect]
     Route: 048
  3. TOPROL-XL [Suspect]
     Route: 048
  4. NEXIUM [Suspect]
     Route: 048

REACTIONS (2)
  - LARYNGITIS [None]
  - CARDIAC DISORDER [None]
